FAERS Safety Report 9661056 (Version 1)
Quarter: 2013Q4

REPORT INFORMATION
  Report Type: Spontaneous
  Country: CN (occurrence: CN)
  Receive Date: 20131031
  Receipt Date: 20131031
  Transmission Date: 20140711
  Serious: Yes (Death)
  Sender: FDA-Public Use
  Company Number: CN-GLAXOSMITHKLINE-B0937647A

PATIENT
  Sex: Female

DRUGS (2)
  1. LAMICTAL [Suspect]
     Indication: EPILEPSY
     Route: 048
  2. UNSPECIFIED MEDICATIONS [Concomitant]

REACTIONS (5)
  - Death [Fatal]
  - Stevens-Johnson syndrome [Unknown]
  - Rash [Unknown]
  - Skin ulcer [Unknown]
  - Ulcer [Unknown]
